FAERS Safety Report 7631339-4 (Version None)
Quarter: 2011Q3

REPORT INFORMATION
  Report Type: 
  Country: None (occurrence: None)
  Receive Date: 20110725
  Receipt Date: 20110721
  Transmission Date: 20111222
  Serious: Yes (Death, Hospitalization)
  Sender: FDA-Public Use
  Company Number: FR-ABBOTT-11P-056-0840908-00

PATIENT
  Age: 67 Year
  Sex: Male

DRUGS (2)
  1. PERINDOPRIL SERVIER 4 MG [Suspect]
     Indication: PRODUCT USED FOR UNKNOWN INDICATION
     Route: 048
  2. FUROSEMIDE [Suspect]
     Indication: PRODUCT USED FOR UNKNOWN INDICATION
     Route: 048

REACTIONS (3)
  - PNEUMONIA ASPIRATION [None]
  - RENAL FAILURE ACUTE [None]
  - DEHYDRATION [None]
